FAERS Safety Report 7006693-7 (Version None)
Quarter: 2010Q3

REPORT INFORMATION
  Report Type: 
  Country: None (occurrence: None)
  Receive Date: 20100921
  Receipt Date: 20100916
  Transmission Date: 20110219
  Serious: Yes (Hospitalization)
  Sender: FDA-Public Use
  Company Number: KR-BRISTOL-MYERS SQUIBB COMPANY-15294812

PATIENT
  Age: 33 Year
  Sex: Male

DRUGS (3)
  1. EFAVIRENZ TABS 600 MG [Suspect]
     Indication: HIV INFECTION
     Route: 048
     Dates: start: 20090825
  2. IBRUPROFEN [Suspect]
     Indication: BONE PAIN
     Dates: start: 20090825
  3. COMBIVIR [Suspect]
     Indication: HIV INFECTION
     Dates: start: 20091127

REACTIONS (1)
  - SCHIZOPHRENIA, RESIDUAL TYPE [None]
